FAERS Safety Report 6644924-3 (Version None)
Quarter: 2010Q1

REPORT INFORMATION
  Report Type: 
  Country: None (occurrence: None)
  Receive Date: 20100322
  Receipt Date: 20100309
  Transmission Date: 20100710
  Serious: Yes (Hospitalization, Other)
  Sender: FDA-Public Use
  Company Number: PHHY2010FR14883

PATIENT
  Sex: Male

DRUGS (17)
  1. NEORAL [Suspect]
     Indication: SKIN GRAFT
     Dosage: 30 MG, BID
     Dates: start: 20091003
  2. VFEND [Suspect]
     Dosage: 200 MG, BID
     Dates: start: 20091102
  3. VFEND [Suspect]
     Dosage: 200 MG/DAY
  4. BACTRIM [Concomitant]
     Dosage: 300 MG, TID
  5. URSOLVAN-200 [Concomitant]
     Dosage: 200 MG, BID
  6. PHENOXYMETHYLPENICILLIN [Concomitant]
     Dosage: 375000 IU, BID
     Dates: start: 20091013
  7. ZOVIRAX [Concomitant]
     Indication: HERPES VIRUS INFECTION
     Dosage: 150 MG, TID
     Dates: start: 20091013
  8. TRIFLUCAN [Concomitant]
     Dosage: UNK
     Dates: start: 20091012, end: 20091103
  9. VITAMIN K TAB [Concomitant]
     Dosage: 5 MG, WEEKLY
     Dates: start: 20090914, end: 20091103
  10. PERFALGAN [Concomitant]
     Dosage: 800 MG/DAY
     Dates: start: 20090904, end: 20091103
  11. ATARAX [Concomitant]
     Dosage: 30 MG/DAY
     Dates: start: 20091024, end: 20091103
  12. VANCOMYCIN [Concomitant]
     Indication: STAPHYLOCOCCAL INFECTION
     Dosage: UNK
     Dates: start: 20091027, end: 20091030
  13. TARGOCID [Concomitant]
     Indication: STAPHYLOCOCCAL INFECTION
     Dosage: 150 MG/DAY
     Dates: start: 20091103, end: 20091106
  14. TEGELINE [Concomitant]
     Indication: INFECTION
     Dosage: UNK
     Dates: start: 20090926
  15. SOLUPRED [Concomitant]
     Dosage: UNK
     Dates: start: 20091029, end: 20091030
  16. FORTUM [Concomitant]
     Dosage: UNK
     Dates: start: 20091027, end: 20091029
  17. AMIKACIN [Concomitant]
     Dosage: UNK
     Dates: start: 20091027, end: 20091028

REACTIONS (2)
  - CHOLESTASIS [None]
  - IMMUNOSUPPRESSANT DRUG LEVEL INCREASED [None]
